FAERS Safety Report 25044381 (Version 2)
Quarter: 2025Q1

REPORT INFORMATION
  Report Type: Spontaneous
  Country: DE (occurrence: DE)
  Receive Date: 20250306
  Receipt Date: 20250317
  Transmission Date: 20250409
  Serious: Yes (Life-Threatening, Other)
  Sender: HIKMA
  Company Number: DE-HIKMA PHARMACEUTICALS USA INC.-DE-H14001-25-02002

PATIENT

DRUGS (1)
  1. CEFUROXIME SODIUM [Suspect]
     Active Substance: CEFUROXIME SODIUM
     Indication: Product used for unknown indication
     Route: 065

REACTIONS (3)
  - Hypersensitivity [Unknown]
  - Cardiovascular disorder [Unknown]
  - Respiratory disorder [Unknown]
